FAERS Safety Report 18173640 (Version 1)
Quarter: 2020Q3

REPORT INFORMATION
  Report Type: Spontaneous
  Country: US (occurrence: US)
  Receive Date: 20200820
  Receipt Date: 20200820
  Transmission Date: 20201103
  Serious: Yes (Death, Hospitalization, Other)
  Sender: FDA-Public Use
  Company Number: US-AUROBINDO-09-AUR-10509

PATIENT
  Age: 83 Year
  Sex: Male

DRUGS (1)
  1. PAROXETINE. [Suspect]
     Active Substance: PAROXETINE
     Indication: DEPRESSION
     Dosage: 20 MILLIGRAM, DAILY
     Route: 065

REACTIONS (10)
  - Pyrexia [Fatal]
  - Blood bilirubin increased [Fatal]
  - Hepatitis [Fatal]
  - Decubitus ulcer [Fatal]
  - Alanine aminotransferase increased [Fatal]
  - Stupor [Fatal]
  - Prothrombin time abnormal [Fatal]
  - Aspartate aminotransferase increased [Fatal]
  - Confusional state [Fatal]
  - Drug-induced liver injury [Fatal]
